FAERS Safety Report 4666752-0 (Version None)
Quarter: 2005Q2

REPORT INFORMATION
  Report Type: 
  Country: None (occurrence: None)
  Receive Date: 20050518
  Receipt Date: 20041216
  Transmission Date: 20051028
  Serious: Yes (Other)
  Sender: FDA-Public Use
  Company Number: 2004102141

PATIENT
  Age: 35 Year
  Sex: Female
  Weight: 71.6683 kg

DRUGS (2)
  1. DEPO-PROVERA SUSPENSION, STERILE (MEDROXYPROGESTERONE ACETATE)SEE IMAG [Suspect]
     Indication: CONTRACEPTION
     Dosage: SEE IMAGE
     Route: 030
     Dates: start: 20030301, end: 20030301
  2. DEPO-PROVERA SUSPENSION, STERILE (MEDROXYPROGESTERONE ACETATE)SEE IMAG [Suspect]
     Indication: CONTRACEPTION
     Dosage: SEE IMAGE
     Route: 030
     Dates: start: 20041024, end: 20041024

REACTIONS (3)
  - NAUSEA [None]
  - UNINTENDED PREGNANCY [None]
  - VAGINAL HAEMORRHAGE [None]
